FAERS Safety Report 6021735-3 (Version None)
Quarter: 2008Q4

REPORT INFORMATION
  Report Type: 
  Country: None (occurrence: None)
  Receive Date: 20081229
  Receipt Date: 20081216
  Transmission Date: 20090506
  Serious: Yes (Death, Hospitalization)
  Sender: FDA-Public Use
  Company Number: US-SANOFI-SYNTHELABO-F03200800014

PATIENT
  Age: 59 Year
  Sex: Male

DRUGS (10)
  1. MEGACE [Concomitant]
     Dosage: UNK
     Route: 065
  2. ZOFRAN [Concomitant]
     Dosage: UNK
     Route: 065
  3. COMPAZINE [Concomitant]
     Dosage: UNK
     Route: 065
  4. CETUXIMAB [Suspect]
     Indication: HEPATIC NEOPLASM MALIGNANT
     Route: 042
     Dates: start: 20071116
  5. CETUXIMAB [Suspect]
     Dosage: 250 MG/M2 WEEKLY OVER 60-120 MINUTES ON DAYS 1, 8 AND 15 OF EACH 21-DAY-CYCLE
     Route: 042
     Dates: start: 20071228, end: 20071228
  6. DEXAMETHASONE [Concomitant]
     Dosage: UNK
     Route: 065
  7. CAPECITABINE [Suspect]
     Indication: HEPATIC NEOPLASM MALIGNANT
     Dosage: 850 MG/M2 ON DAYS 1-14 OF EACH 21-DAY-CYCLE
     Route: 048
     Dates: start: 20071228
  8. LASIX [Concomitant]
     Dosage: UNK
     Route: 065
  9. OXALIPLATIN [Suspect]
     Indication: HEPATIC NEOPLASM MALIGNANT
     Route: 042
     Dates: start: 20071228
  10. OXYCODONE [Concomitant]
     Dosage: UNK
     Route: 065

REACTIONS (8)
  - ACUTE PRERENAL FAILURE [None]
  - CLOSTRIDIAL INFECTION [None]
  - DEATH [None]
  - HEPATORENAL SYNDROME [None]
  - METABOLIC ACIDOSIS [None]
  - OESOPHAGEAL VARICES HAEMORRHAGE [None]
  - RENAL FAILURE ACUTE [None]
  - RESPIRATORY ALKALOSIS [None]
